FAERS Safety Report 13758942 (Version 1)
Quarter: 2017Q3

REPORT INFORMATION
  Report Type: Spontaneous
  Country: FR (occurrence: FR)
  Receive Date: 20170717
  Receipt Date: 20170717
  Transmission Date: 20171127
  Serious: Yes (Hospitalization, Other)
  Sender: FDA-Public Use
  Company Number: FR-ELI_LILLY_AND_COMPANY-FR201707004773

PATIENT
  Age: 65 Year
  Sex: Male

DRUGS (3)
  1. CORTANCYL [Concomitant]
     Active Substance: PREDNISONE
     Dosage: 25 DF, BID
     Route: 065
     Dates: start: 20170613, end: 20170615
  2. FEROGRAD [Concomitant]
     Active Substance: ASCORBIC ACID\FERROUS SULFATE
     Dosage: 500 MG, DAILY
     Route: 065
     Dates: start: 20170510
  3. ALIMTA [Suspect]
     Active Substance: PEMETREXED DISODIUM
     Indication: NON-SMALL CELL LUNG CANCER
     Dosage: 890 MG, CYCLICAL
     Route: 042
     Dates: start: 20170614

REACTIONS (3)
  - Myalgia [Unknown]
  - Rash maculo-papular [Recovering/Resolving]
  - C-reactive protein increased [Unknown]

NARRATIVE: CASE EVENT DATE: 20170616
